FAERS Safety Report 5991014-9 (Version None)
Quarter: 2008Q4

REPORT INFORMATION
  Report Type: 
  Country: None (occurrence: None)
  Receive Date: 20081211
  Receipt Date: 20081201
  Transmission Date: 20090506
  Serious: Yes (Life-Threatening, Hospitalization)
  Sender: FDA-Public Use
  Company Number: GB-MERCK-0804GBR00016

PATIENT
  Age: 69 Year
  Sex: Male

DRUGS (11)
  1. ZETIA [Suspect]
     Route: 065
     Dates: end: 20071217
  2. ATORVASTATIN [Suspect]
     Route: 065
     Dates: end: 20071217
  3. DICLOFENAC [Suspect]
     Indication: PROCEDURAL PAIN
     Route: 065
     Dates: start: 20071127, end: 20071203
  4. FLOXACILLIN [Suspect]
     Indication: POST PROCEDURAL INFECTION
     Route: 065
     Dates: start: 20071127, end: 20071217
  5. FUSIDATE SODIUM [Suspect]
     Indication: POST PROCEDURAL INFECTION
     Route: 065
     Dates: start: 20071127, end: 20071217
  6. ASPIRIN [Concomitant]
     Route: 065
  7. ATENOLOL [Concomitant]
     Route: 065
  8. ESOMEPRAZOLE [Concomitant]
     Route: 065
  9. FOLIC ACID [Concomitant]
     Route: 065
  10. RAMIPRIL [Concomitant]
     Route: 065
  11. TRAMADOL HYDROCHLORIDE [Concomitant]
     Route: 065

REACTIONS (2)
  - RENAL FAILURE ACUTE [None]
  - RHABDOMYOLYSIS [None]
